FAERS Safety Report 17942876 (Version 1)
Quarter: 2020Q2

REPORT INFORMATION
  Report Type: Spontaneous
  Country: GB (occurrence: GB)
  Receive Date: 20200624
  Receipt Date: 20200624
  Transmission Date: 20200714
  Serious: No
  Sender: FDA-Public Use
  Company Number: GB-MARKSANS PHARMA LIMITED-2086647

PATIENT
  Sex: Male

DRUGS (1)
  1. IBUPROFEN MOLECULE FROM UK MARKET [Suspect]
     Active Substance: IBUPROFEN

REACTIONS (2)
  - Vomiting [None]
  - Abdominal pain upper [None]
